FAERS Safety Report 17080712 (Version 1)
Quarter: 2019Q4

REPORT INFORMATION
  Report Type: Other
  Country: US (occurrence: US)
  Receive Date: 20191127
  Receipt Date: 20191127
  Transmission Date: 20200122
  Serious: Yes (Life-Threatening, Hospitalization, Other)
  Sender: FDA-Public Use
  Company Number: US-DEXPHARM-20191043

PATIENT
  Age: 40 Year
  Sex: Male

DRUGS (7)
  1. DEXAMETHASONE. [Suspect]
     Active Substance: DEXAMETHASONE
     Indication: ASTROCYTOMA
  2. VANCOMYCIN [Concomitant]
     Active Substance: VANCOMYCIN
  3. ALBENDAZOLE. [Concomitant]
     Active Substance: ALBENDAZOLE
  4. LEVETIRACETAM. [Concomitant]
     Active Substance: LEVETIRACETAM
     Indication: SEIZURE
  5. IVERMECTIN. [Concomitant]
     Active Substance: IVERMECTIN
  6. PIPERACILLIN AND TAZOBACTAM [Concomitant]
     Active Substance: PIPERACILLIN SODIUM\TAZOBACTAM SODIUM
  7. ACYCLOVIR. [Concomitant]
     Active Substance: ACYCLOVIR

REACTIONS (10)
  - Acute respiratory distress syndrome [Recovering/Resolving]
  - Inappropriate antidiuretic hormone secretion [Recovering/Resolving]
  - Seizure [Recovering/Resolving]
  - Varicella zoster virus infection [Recovering/Resolving]
  - Meningitis viral [Recovering/Resolving]
  - Small intestinal obstruction [Recovering/Resolving]
  - Strongyloidiasis [Recovering/Resolving]
  - Cytomegalovirus infection [Recovering/Resolving]
  - Herpes simplex [Recovering/Resolving]
  - Pneumonia streptococcal [Recovering/Resolving]
